FAERS Safety Report 17916063 (Version 1)
Quarter: 2020Q2

REPORT INFORMATION
  Report Type: Spontaneous
  Country: US (occurrence: US)
  Receive Date: 20200619
  Receipt Date: 20200619
  Transmission Date: 20200714
  Serious: Yes (Hospitalization, Disabling)
  Sender: FDA-Public Use
  Company Number: None

PATIENT
  Age: 25 Year
  Sex: Female
  Weight: 59.4 kg

DRUGS (10)
  1. PAMELOR [Concomitant]
     Active Substance: NORTRIPTYLINE HYDROCHLORIDE
  2. MAGNESIUM [Concomitant]
     Active Substance: MAGNESIUM
  3. AMBIEN [Concomitant]
     Active Substance: ZOLPIDEM TARTRATE
  4. LYRICA [Concomitant]
     Active Substance: PREGABALIN
  5. ADDERALL [Concomitant]
     Active Substance: AMPHETAMINE ASPARTATE\AMPHETAMINE SULFATE\DEXTROAMPHETAMINE SACCHARATE\DEXTROAMPHETAMINE SULFATE
  6. ASPIRIN. [Concomitant]
     Active Substance: ASPIRIN
  7. BUPRENORPHINE/NALOXONE SUBLINGUAL FILM [Suspect]
     Active Substance: BUPRENORPHINE\NALOXONE
     Indication: DRUG DEPENDENCE
     Dosage: ?          QUANTITY:1 FILM;?
     Route: 060
     Dates: start: 20190504, end: 20200617
  8. FISH OIL [Concomitant]
     Active Substance: FISH OIL
  9. BUPRENORPHINE/NALOXONE SUBLINGUAL FILM [Suspect]
     Active Substance: BUPRENORPHINE\NALOXONE
     Indication: PAIN
     Dosage: ?          QUANTITY:1 FILM;?
     Route: 060
     Dates: start: 20190504, end: 20200617
  10. FLEXERIL [Concomitant]
     Active Substance: CYCLOBENZAPRINE HYDROCHLORIDE

REACTIONS (3)
  - Depression [None]
  - Suicidal ideation [None]
  - Suicide attempt [None]

NARRATIVE: CASE EVENT DATE: 20190504
